FAERS Safety Report 11146081 (Version 1)
Quarter: 2015Q2

REPORT INFORMATION
  Report Type: Spontaneous
  Country: US (occurrence: US)
  Receive Date: 20150528
  Receipt Date: 20150528
  Transmission Date: 20150821
  Serious: Yes (Other)
  Sender: FDA-Public Use
  Company Number: US-ASTRAZENECA-2015SE50564

PATIENT
  Age: 49 Year
  Sex: Female

DRUGS (27)
  1. GLIMEPIRIDE. [Concomitant]
     Active Substance: GLIMEPIRIDE
     Dates: start: 20070603
  2. IBUPROFEN. [Concomitant]
     Active Substance: IBUPROFEN
     Dates: start: 20070811
  3. PREDNISONE. [Concomitant]
     Active Substance: PREDNISONE
     Dates: start: 20091203
  4. CIPROFLOXACIN HCL [Concomitant]
     Active Substance: CIPROFLOXACIN HYDROCHLORIDE
     Dates: start: 20100211
  5. LEVOTHYROXINE [Concomitant]
     Active Substance: LEVOTHYROXINE
     Dates: start: 20110623
  6. BYETTA [Suspect]
     Active Substance: EXENATIDE
     Dosage: 5 MCG / 0.02 ML
     Route: 065
     Dates: start: 20060510
  7. CLONIDINE HCL [Concomitant]
     Active Substance: CLONIDINE HYDROCHLORIDE
     Dates: start: 20070817
  8. TRICOR [Concomitant]
     Active Substance: FENOFIBRATE
     Dates: start: 20090209
  9. SIMVASTATIN. [Concomitant]
     Active Substance: SIMVASTATIN
     Dates: start: 20090720
  10. VALSARTAN AND HYDROCHLOROTHIAZIDE [Concomitant]
     Active Substance: HYDROCHLOROTHIAZIDE\VALSARTAN
     Dates: start: 20130126
  11. LIVALO [Concomitant]
     Active Substance: PITAVASTATIN CALCIUM
     Dates: start: 20130323
  12. BYETTA [Suspect]
     Active Substance: EXENATIDE
     Dosage: 10 MCG / 0.04 ML
     Route: 065
     Dates: start: 20060610
  13. BYETTA [Suspect]
     Active Substance: EXENATIDE
     Route: 065
     Dates: start: 20080830
  14. NAPROXEN. [Concomitant]
     Active Substance: NAPROXEN
     Dates: start: 20121002
  15. FEXOFENADINE HCL [Concomitant]
     Active Substance: FEXOFENADINE HYDROCHLORIDE
     Dates: start: 20080509
  16. XYZAL [Concomitant]
     Active Substance: LEVOCETIRIZINE DIHYDROCHLORIDE
     Dates: start: 20080512
  17. JANUVIA [Concomitant]
     Active Substance: SITAGLIPTIN PHOSPHATE
     Dates: start: 20090701
  18. PANTOPRAZOLE SODIUM [Concomitant]
     Dates: start: 20091203
  19. PRAVASTATIN SODIUM. [Concomitant]
     Active Substance: PRAVASTATIN SODIUM
     Dates: start: 20120916
  20. DEXILANT [Concomitant]
     Active Substance: DEXLANSOPRAZOLE
     Dates: start: 20100603
  21. CEPHALEXIN. [Concomitant]
     Active Substance: CEPHALEXIN
     Dates: start: 20130126
  22. CRESTOR [Concomitant]
     Active Substance: ROSUVASTATIN CALCIUM
     Dates: start: 20070617
  23. FLUCONAZOLE. [Concomitant]
     Active Substance: FLUCONAZOLE
     Dates: start: 20070720
  24. PENICILLIN VK [Concomitant]
     Active Substance: PENICILLIN V POTASSIUM
     Dates: start: 20071229
  25. VERAPAMIL ER [Concomitant]
     Active Substance: VERAPAMIL HYDROCHLORIDE
     Dates: start: 20070608
  26. METFORMIN HCL [Concomitant]
     Active Substance: METFORMIN HYDROCHLORIDE
     Dates: start: 20070612
  27. AMOXICILLIN. [Concomitant]
     Active Substance: AMOXICILLIN
     Dates: start: 20110822

REACTIONS (5)
  - Goitre [Unknown]
  - Thyroid neoplasm [Unknown]
  - Autoimmune thyroiditis [Unknown]
  - Post procedural hypothyroidism [Unknown]
  - Papillary thyroid cancer [Unknown]

NARRATIVE: CASE EVENT DATE: 2010
